FAERS Safety Report 8027781-2 (Version None)
Quarter: 2011Q4

REPORT INFORMATION
  Report Type: 
  Country: None (occurrence: None)
  Receive Date: 20111130
  Receipt Date: 20110616
  Transmission Date: 20120403
  Serious: Yes (Hospitalization, Other)
  Sender: FDA-Public Use
  Company Number: US201004000731

PATIENT
  Age: 68 Year
  Sex: Male
  Weight: 81.6 kg

DRUGS (14)
  1. BYETTA [Suspect]
     Dates: start: 20060101, end: 20090301
  2. LOPRESSOR [Concomitant]
  3. MEVACOR [Concomitant]
  4. METFORMIN HCL [Concomitant]
  5. ASPIRIN [Concomitant]
  6. MULTIVITAMINS (ASCORBIC ACID, ERGOCALCALCIFEROL, FOLIC ACID, NICOTINAM [Concomitant]
  7. INSULIN [Concomitant]
  8. LOVASTATIN [Concomitant]
  9. LISINOPRIL [Concomitant]
  10. PRILOSEC [Concomitant]
  11. EXENATIDE, DISPOSABLE DEVICE (EXENATIDE PEN ) PEN,DISPOSABLE [Concomitant]
  12. ACTOS [Concomitant]
  13. PERCOCET [Concomitant]
  14. DILAUDID [Concomitant]

REACTIONS (3)
  - PANCREATITIS NECROTISING [None]
  - PANCREATITIS [None]
  - PANCREATITIS ACUTE [None]
